FAERS Safety Report 4988923-6 (Version None)
Quarter: 2006Q2

REPORT INFORMATION
  Report Type: 
  Country: None (occurrence: None)
  Receive Date: 20060425
  Receipt Date: 20060412
  Transmission Date: 20061013
  Serious: Yes (Hospitalization, Other)
  Sender: FDA-Public Use
  Company Number: HQWYE838614APR06

PATIENT
  Age: 59 Year
  Sex: Female
  Weight: 83.5 kg

DRUGS (7)
  1. RAPAMUNE [Suspect]
     Indication: PROPHYLAXIS AGAINST TRANSPLANT REJECTION
     Dosage: 5 MG 1X PER 1 DAY, ORAL
     Route: 048
     Dates: start: 20060330
  2. BACTRIM [Concomitant]
  3. PRINIVIL [Concomitant]
  4. GLUCOPHAGE [Concomitant]
  5. MAGNESIUM GLUCONATE [Concomitant]
  6. CALCIUM GLUCONATE [Concomitant]
  7. MEVACOR [Concomitant]

REACTIONS (7)
  - ASTHENIA [None]
  - DEHYDRATION [None]
  - DIARRHOEA [None]
  - DIZZINESS [None]
  - FLUID INTAKE REDUCED [None]
  - HYPOTENSION [None]
  - ORAL INTAKE REDUCED [None]
